FAERS Safety Report 17438175 (Version 1)
Quarter: 2020Q1

REPORT INFORMATION
  Report Type: Spontaneous
  Country: US (occurrence: US)
  Receive Date: 20191118
  Receipt Date: 20191118
  Transmission Date: 20200409
  Serious: Yes (Life-Threatening, Disabling, Other)
  Sender: FDA-Public Use
  Company Number: None

PATIENT
  Age: 17 Year
  Sex: Female

DRUGS (5)
  1. STRATTERA [Concomitant]
     Active Substance: ATOMOXETINE HYDROCHLORIDE
  2. ESTRADIOL. [Concomitant]
     Active Substance: ESTRADIOL
  3. CANNABIS VAPING [Suspect]
     Active Substance: CANNABIS SATIVA SUBSP. INDICA TOP\DEVICE
  4. SOURIN AIR [LIQUID NICOTINE] [Suspect]
     Active Substance: DEVICE\NICOTINE
  5. PROZAC [Concomitant]
     Active Substance: FLUOXETINE HYDROCHLORIDE

REACTIONS (1)
  - Generalised tonic-clonic seizure [None]
